FAERS Safety Report 6908894-2 (Version None)
Quarter: 2010Q3

REPORT INFORMATION
  Report Type: 
  Country: None (occurrence: None)
  Receive Date: 20100805
  Receipt Date: 20100728
  Transmission Date: 20110219
  Serious: Yes (Death, Hospitalization, Other)
  Sender: FDA-Public Use
  Company Number: DE-BAXTER-2010BH020308

PATIENT
  Age: 70 Year
  Sex: Male

DRUGS (3)
  1. EXTRANEAL [Suspect]
     Indication: PERITONEAL DIALYSIS
     Route: 033
     Dates: start: 20100619, end: 20100623
  2. GLUCOSE SOLUTION 1.36% [Suspect]
     Indication: PERITONEAL DIALYSIS
     Route: 033
     Dates: start: 20100619, end: 20100623
  3. GLUCOSE SOLUTION 1.36% [Suspect]
     Route: 033
     Dates: start: 20100619, end: 20100623

REACTIONS (2)
  - DEATH [None]
  - PERITONITIS [None]
